FAERS Safety Report 23434040 (Version 1)
Quarter: 2024Q1

REPORT INFORMATION
  Report Type: Spontaneous
  Country: US (occurrence: US)
  Receive Date: 20240123
  Receipt Date: 20240123
  Transmission Date: 20240410
  Serious: Yes (Hospitalization)
  Sender: FDA-Public Use
  Company Number: US-MYLANLABS-2024M1005800

PATIENT
  Age: 3 Decade
  Sex: Female

DRUGS (5)
  1. MAGNESIUM SULFATE [Suspect]
     Active Substance: MAGNESIUM SULFATE\MAGNESIUM SULFATE HEPTAHYDRATE
     Indication: Nervous system disorder prophylaxis
     Dosage: 6 GRAM, BOLUS, INFUSION
     Route: 065
  2. MAGNESIUM SULFATE [Suspect]
     Active Substance: MAGNESIUM SULFATE\MAGNESIUM SULFATE HEPTAHYDRATE
     Dosage: 2 GRAM, QH, INFUSION
     Route: 065
  3. METOPROLOL [Suspect]
     Active Substance: METOPROLOL
     Indication: Prinzmetal angina
     Dosage: 12.5 MILLIGRAM, TID, THREE TIMES PER DAY
     Route: 065
  4. METOPROLOL [Suspect]
     Active Substance: METOPROLOL
     Indication: Electrocardiogram QT prolonged
  5. CALCIUM [Suspect]
     Active Substance: CALCIUM
     Indication: Hypocalcaemia
     Dosage: 2 GRAM
     Route: 042

REACTIONS (6)
  - Hypocalcaemia [Recovered/Resolved]
  - Hypermagnesaemia [Recovered/Resolved]
  - Maternal exposure during pregnancy [Recovered/Resolved]
  - Prinzmetal angina [Recovered/Resolved]
  - Electrocardiogram QT prolonged [Recovered/Resolved]
  - Arteriospasm coronary [Recovered/Resolved]
